FAERS Safety Report 10587554 (Version 5)
Quarter: 2016Q4

REPORT INFORMATION
  Report Type: Report from Study
  Country: CA (occurrence: CA)
  Receive Date: 20141117
  Receipt Date: 20161125
  Transmission Date: 20170206
  Serious: Yes (Other)
  Sender: FDA-Public Use
  Company Number: CA-ROCHE-1489304

PATIENT
  Age: 57 Year
  Sex: Female

DRUGS (10)
  1. RITUXAN [Suspect]
     Active Substance: RITUXIMAB
     Indication: POLYMYOSITIS
     Dosage: DAY 1, 15, LAST DOSE OF INFUSION RECEIVED ON 04/MAR/2014.
     Route: 042
     Dates: start: 20140218
  2. IRBESARTAN. [Concomitant]
     Active Substance: IRBESARTAN
  3. IMURAN [Concomitant]
     Active Substance: AZATHIOPRINE
  4. AVAPRO [Concomitant]
     Active Substance: IRBESARTAN
  5. PREDNISONE. [Concomitant]
     Active Substance: PREDNISONE
  6. FOLIC ACID. [Concomitant]
     Active Substance: FOLIC ACID
  7. ALENDRONATE [Concomitant]
     Active Substance: ALENDRONATE SODIUM
  8. FOSAMAX [Concomitant]
     Active Substance: ALENDRONATE SODIUM
  9. DOMPERIDONE [Concomitant]
     Active Substance: DOMPERIDONE
  10. LOSEC [Concomitant]
     Active Substance: OMEPRAZOLE

REACTIONS (11)
  - Throat irritation [Recovered/Resolved]
  - Myalgia [Recovered/Resolved]
  - Headache [Recovered/Resolved]
  - Arthralgia [Recovered/Resolved]
  - Nerve compression [Not Recovered/Not Resolved]
  - Pain in extremity [Not Recovered/Not Resolved]
  - Back pain [Not Recovered/Not Resolved]
  - Cough [Recovered/Resolved]
  - Off label use [Unknown]
  - Blood pressure systolic abnormal [Unknown]
  - Ill-defined disorder [Unknown]

NARRATIVE: CASE EVENT DATE: 2016
